FAERS Safety Report 7806256-7 (Version None)
Quarter: 2011Q4

REPORT INFORMATION
  Report Type: 
  Country: None (occurrence: None)
  Receive Date: 20111011
  Receipt Date: 20111004
  Transmission Date: 20120403
  Serious: Yes (Hospitalization)
  Sender: FDA-Public Use
  Company Number: FR-JNJFOC-20111003776

PATIENT
  Sex: Female

DRUGS (10)
  1. RISPERDAL [Concomitant]
  2. AMLODIPINE BESYLATE [Concomitant]
  3. PROZAC [Concomitant]
  4. LEVOTHYROXINE SODIUM [Concomitant]
  5. OXAZEPAM [Concomitant]
  6. TRIHEXYPHENIDYL HYDROCHLORIDE [Concomitant]
  7. XARELTO [Suspect]
     Indication: THROMBOSIS PROPHYLAXIS
     Route: 048
     Dates: start: 20110819, end: 20110823
  8. DEPAKOTE [Concomitant]
  9. RABEPRAZOLE SODIUM [Concomitant]
     Dates: start: 20110819
  10. LORAZEPAM [Concomitant]

REACTIONS (1)
  - DEEP VEIN THROMBOSIS [None]
